FAERS Safety Report 7673617-9 (Version None)
Quarter: 2011Q3

REPORT INFORMATION
  Report Type: 
  Country: None (occurrence: None)
  Receive Date: 20110808
  Receipt Date: 20110725
  Transmission Date: 20111222
  Serious: Yes (Other)
  Sender: FDA-Public Use
  Company Number: UTC-007416

PATIENT
  Age: 6 Year
  Sex: Female
  Weight: 20 kg

DRUGS (3)
  1. REMODULIN [Suspect]
     Indication: PULMONARY HYPERTENSION
     Dosage: 60.48 UG/KG (0.42 UG/KG, 1 IN 1 MIN), SUBCUTANEOUS
     Route: 058
     Dates: start: 20090928
  2. BOSENTAN (BOSENTAN) [Concomitant]
  3. SILDENAFIL (SILFENAFIL) [Concomitant]

REACTIONS (1)
  - CONVULSION [None]
